FAERS Safety Report 14966870 (Version 1)
Quarter: 2018Q2

REPORT INFORMATION
  Report Type: Report from Study
  Country: RU (occurrence: RU)
  Receive Date: 20180604
  Receipt Date: 20180604
  Transmission Date: 20180711
  Serious: No
  Sender: FDA-Public Use
  Company Number: RU-CHEPLA-1900297

PATIENT
  Age: 53 Year
  Sex: Female

DRUGS (2)
  1. XENICAL [Suspect]
     Active Substance: ORLISTAT
     Indication: OVERWEIGHT
     Dosage: 120 MG PER DAY FOR 3 DAYS
     Route: 048
  2. XENICAL [Suspect]
     Active Substance: ORLISTAT
     Dosage: 120 MG 3 TIMES PER DAY FOR 1 MONTH
     Route: 048

REACTIONS (4)
  - Flatulence [Recovering/Resolving]
  - Drug ineffective [Unknown]
  - Abdominal pain upper [Recovering/Resolving]
  - Steatorrhoea [Not Recovered/Not Resolved]
